FAERS Safety Report 14746762 (Version 2)
Quarter: 2018Q3

REPORT INFORMATION
  Report Type: Spontaneous
  Country: FR (occurrence: FR)
  Receive Date: 20180411
  Receipt Date: 20180821
  Transmission Date: 20181010
  Serious: Yes (Hospitalization, Other)
  Sender: FDA-Public Use
  Company Number: FR-ALEXION PHARMACEUTICALS INC.-A201803112

PATIENT
  Age: 1 Year
  Sex: Male
  Weight: 9.2 kg

DRUGS (4)
  1. ORACILLINE                         /00001801/ [Suspect]
     Active Substance: PENICILLIN V
     Indication: PROPHYLAXIS
     Dosage: 100000 IU/KG, QD
     Route: 048
     Dates: start: 20180308, end: 20180525
  2. SOLIRIS [Suspect]
     Active Substance: ECULIZUMAB
     Indication: OFF LABEL USE
     Dosage: UNK
     Route: 065
     Dates: start: 20180308, end: 20180315
  3. SOLIRIS [Suspect]
     Active Substance: ECULIZUMAB
     Indication: HAEMOLYTIC URAEMIC SYNDROME
     Dosage: UNK
     Route: 065
     Dates: start: 20180308, end: 20180315
  4. SOLIRIS [Suspect]
     Active Substance: ECULIZUMAB
     Dosage: 300 MG, QW
     Route: 042
     Dates: start: 20180308, end: 20180315

REACTIONS (15)
  - Hepatitis cholestatic [Not Recovered/Not Resolved]
  - Jaundice [Not Recovered/Not Resolved]
  - Cell death [Not Recovered/Not Resolved]
  - Pruritus [Unknown]
  - Collateral circulation [Unknown]
  - Cholestasis [Not Recovered/Not Resolved]
  - Liver injury [Unknown]
  - Off label use [Recovered/Resolved]
  - Transaminases increased [Unknown]
  - Abdominal distension [Unknown]
  - Coma [Unknown]
  - Renal disorder [Unknown]
  - Malnutrition [Unknown]
  - Seizure [Unknown]
  - Hepatomegaly [Unknown]

NARRATIVE: CASE EVENT DATE: 20180308
